FAERS Safety Report 10084457 (Version 2)
Quarter: 2014Q2

REPORT INFORMATION
  Report Type: Spontaneous
  Country: GB (occurrence: GB)
  Receive Date: 20140417
  Receipt Date: 20140423
  Transmission Date: 20141212
  Serious: Yes (Death)
  Sender: FDA-Public Use
  Company Number: GB-ABBVIE-14P-167-1226844-00

PATIENT
  Age: 16 Year
  Sex: Female

DRUGS (2)
  1. VALPROATE SODIUM [Suspect]
     Indication: COMPLETED SUICIDE
     Dosage: ONCE
     Route: 065
  2. VALPROATE SODIUM [Suspect]
     Indication: EPILEPSY

REACTIONS (6)
  - Completed suicide [Fatal]
  - Overdose [Fatal]
  - Acute hepatic failure [Fatal]
  - Brain death [Fatal]
  - Coma [Fatal]
  - No therapeutic response [Unknown]
